FAERS Safety Report 8768076 (Version 1)
Quarter: 2012Q4

REPORT INFORMATION
  Report Type: 
  Country: CH (occurrence: CH)
  Receive Date: 20120905
  Receipt Date: 20120905
  Transmission Date: 20130627
  Serious: Yes (Other)
  Sender: FDA-Public Use
  Company Number: CH-WATSON-2012-15232

PATIENT
  Age: 44 Year
  Sex: Male

DRUGS (4)
  1. PREDNISONE (UNKNOWN) [Suspect]
     Indication: DERMATOMYOSITIS
     Dosage: 5 mg, daily
     Route: 065
  2. CYCLOSPORINE [Suspect]
     Indication: DERMATOMYOSITIS
     Dosage: 275 mg, daily
     Route: 065
  3. MYCOPHENOLATE MOFETIL [Suspect]
     Indication: DERMATOMYOSITIS
     Dosage: 1.25 g, daily
     Route: 065
  4. IMMUNOGLOBULIN [Suspect]
     Indication: DERMATOMYOSITIS
     Dosage: 2 UNK, unknown
     Route: 042

REACTIONS (1)
  - Progressive multifocal leukoencephalopathy [Recovering/Resolving]
